FAERS Safety Report 12436989 (Version 1)
Quarter: 2016Q2

REPORT INFORMATION
  Report Type: Spontaneous
  Country: US (occurrence: None)
  Receive Date: 20160603
  Receipt Date: 20160603
  Transmission Date: 20160815
  Serious: Yes (Life-Threatening, Hospitalization, Other)
  Sender: FDA-Public Use
  Company Number: None

PATIENT
  Age: 8 Year
  Sex: Female
  Weight: 27.22 kg

DRUGS (1)
  1. C-CHLORAL HYDRATE 100MG/ML, 100MG/ C-HYDROXYZINE  PAM 25MG/5ML VITAL CARE COMPOUNDER [Suspect]
     Active Substance: CHLORAL HYDRATE\HYDROXYZINE PAMOATE
     Indication: DENTAL OPERATION
     Route: 048
     Dates: start: 20160602, end: 20160602

REACTIONS (1)
  - Loss of consciousness [None]

NARRATIVE: CASE EVENT DATE: 20160602
